FAERS Safety Report 9407295 (Version 1)
Quarter: 2013Q3

REPORT INFORMATION
  Report Type: Spontaneous
  Country: US (occurrence: US)
  Receive Date: 20130718
  Receipt Date: 20130718
  Transmission Date: 20140515
  Serious: Yes (Other)
  Sender: FDA-Public Use
  Company Number: US-BAYER-2013-084514

PATIENT
  Age: 69 Year
  Sex: Female

DRUGS (3)
  1. PHILLIPS^ COLON HEALTH [Suspect]
     Dosage: 1 DF, UNK
     Route: 048
     Dates: start: 20130617, end: 201306
  2. PHILLIPS^ MILK OF MAGNESIA [Suspect]
     Indication: CONSTIPATION
     Dosage: 4 TBSP, PRN
     Route: 048
  3. PHILLIPS^ LAXATIVE DIETARY SUPPLEMENT [Suspect]
     Route: 048

REACTIONS (7)
  - Abdominal discomfort [Recovered/Resolved]
  - Gastrointestinal disorder [Recovered/Resolved]
  - Gastrointestinal sounds abnormal [Recovered/Resolved]
  - Diarrhoea [Recovered/Resolved]
  - Nausea [None]
  - Dysgeusia [None]
  - Drug ineffective [None]
